FAERS Safety Report 7730656-7 (Version None)
Quarter: 2011Q3

REPORT INFORMATION
  Report Type: 
  Country: None (occurrence: None)
  Receive Date: 20110906
  Receipt Date: 20110824
  Transmission Date: 20111222
  Serious: Yes (Hospitalization)
  Sender: FDA-Public Use
  Company Number: US-GLAXOSMITHKLINE-A0755094A

PATIENT
  Age: 68 Year
  Sex: Male
  Weight: 77.3 kg

DRUGS (12)
  1. GLUCOPHAGE [Concomitant]
  2. GLYBURIDE [Concomitant]
  3. ASPIRIN [Concomitant]
  4. AVANDIA [Suspect]
     Indication: TYPE 2 DIABETES MELLITUS
     Dosage: 8MG PER DAY
     Route: 048
     Dates: start: 20031120, end: 20070617
  5. METOPROLOL [Concomitant]
  6. NIACIN [Concomitant]
  7. NITROGLYCERIN [Concomitant]
  8. ZOCOR [Concomitant]
  9. METFORMIN HCL [Concomitant]
  10. LISINOPRIL [Concomitant]
  11. SIMVASTATIN [Concomitant]
  12. METOPROLOL [Concomitant]

REACTIONS (7)
  - CEREBROVASCULAR ACCIDENT [None]
  - VISION BLURRED [None]
  - ANXIETY [None]
  - MYOCARDIAL INFARCTION [None]
  - CHEST PAIN [None]
  - DIZZINESS [None]
  - CARDIAC DISORDER [None]
